FAERS Safety Report 6694265-3 (Version None)
Quarter: 2010Q2

REPORT INFORMATION
  Report Type: 
  Country: None (occurrence: None)
  Receive Date: 20100421
  Receipt Date: 20100413
  Transmission Date: 20101027
  Serious: Yes (Hospitalization, Other)
  Sender: FDA-Public Use
  Company Number: 2009SP021931

PATIENT
  Age: 24 Year
  Sex: Female
  Weight: 65.7716 kg

DRUGS (7)
  1. NUVARING [Suspect]
     Indication: CONTRACEPTION
     Dates: start: 20070212, end: 20070901
  2. NEXIUM [Concomitant]
  3. HYDROCODONE BITARTRATE [Concomitant]
  4. BACTRIM DS [Concomitant]
  5. PLAN B [Concomitant]
  6. DOXYCYCLINE [Concomitant]
  7. ACCUTANE [Concomitant]

REACTIONS (35)
  - ACTIVATED PARTIAL THROMBOPLASTIN TIME PROLONGED [None]
  - CANDIDIASIS [None]
  - CASTLEMAN'S DISEASE [None]
  - CERVICAL DYSPLASIA [None]
  - COELIAC DISEASE [None]
  - DEPRESSION [None]
  - DYSMENORRHOEA [None]
  - GASTROOESOPHAGEAL REFLUX DISEASE [None]
  - GRANULOMA [None]
  - HILAR LYMPHADENOPATHY [None]
  - HISTOPLASMOSIS [None]
  - INFECTION [None]
  - INTERNATIONAL NORMALISED RATIO INCREASED [None]
  - INTESTINAL POLYP [None]
  - IRON DEFICIENCY ANAEMIA [None]
  - LEUKOPENIA [None]
  - LYMPHOMA [None]
  - MENORRHAGIA [None]
  - MIGRAINE [None]
  - NEOPLASM MALIGNANT [None]
  - OCCULT BLOOD POSITIVE [None]
  - OESOPHAGITIS [None]
  - PAIN [None]
  - PEPTIC ULCER [None]
  - PROTHROMBIN TIME PROLONGED [None]
  - PULMONARY EMBOLISM [None]
  - PULMONARY INFARCTION [None]
  - REFUSAL OF TREATMENT BY PATIENT [None]
  - ROAD TRAFFIC ACCIDENT [None]
  - SARCOIDOSIS [None]
  - SINUSITIS [None]
  - SMALL INTESTINE ULCER [None]
  - UTERINE ENLARGEMENT [None]
  - UTERINE MALPOSITION [None]
  - VAGINITIS BACTERIAL [None]
